FAERS Safety Report 7591166-3 (Version None)
Quarter: 2011Q3

REPORT INFORMATION
  Report Type: 
  Country: None (occurrence: None)
  Receive Date: 20110705
  Receipt Date: 20110624
  Transmission Date: 20111222
  Serious: Yes (Other)
  Sender: FDA-Public Use
  Company Number: US-ASTRAZENECA-2011SE38474

PATIENT
  Age: 68 Year
  Sex: Female

DRUGS (1)
  1. CRESTOR [Suspect]
     Route: 048

REACTIONS (4)
  - OPTIC NERVE DISORDER [None]
  - DIABETES MELLITUS [None]
  - TRANSIENT ISCHAEMIC ATTACK [None]
  - BLOOD GLUCOSE DECREASED [None]
